FAERS Safety Report 12742904 (Version 1)
Quarter: 2016Q3

REPORT INFORMATION
  Report Type: Spontaneous
  Country: US (occurrence: US)
  Receive Date: 20160914
  Receipt Date: 20160914
  Transmission Date: 20161109
  Serious: Yes (Life-Threatening, Hospitalization)
  Sender: FDA-Public Use
  Company Number: None

PATIENT
  Age: 49 Year
  Sex: Female
  Weight: 51.75 kg

DRUGS (13)
  1. LISINOPRIL. [Suspect]
     Active Substance: LISINOPRIL
     Indication: ACUTE MYOCARDIAL INFARCTION
     Route: 048
     Dates: start: 20160124, end: 20160907
  2. GABAPENTIN. [Concomitant]
     Active Substance: GABAPENTIN
  3. IBUPROFEN. [Concomitant]
     Active Substance: IBUPROFEN
  4. FISH OIL [Concomitant]
     Active Substance: FISH OIL
  5. CLOPIDOGREL BISULFATE. [Concomitant]
     Active Substance: CLOPIDOGREL BISULFATE
  6. MONTELUKAST SODIUM. [Concomitant]
     Active Substance: MONTELUKAST SODIUM
  7. MULTIVITAMIN [Suspect]
     Active Substance: VITAMINS
  8. PREMARIN [Concomitant]
     Active Substance: ESTROGENS, CONJUGATED
  9. VITAMIN D3 [Concomitant]
     Active Substance: CHOLECALCIFEROL
  10. METOPROLOL SUCCINATE. [Concomitant]
     Active Substance: METOPROLOL SUCCINATE
  11. ATORVASTATIN [Concomitant]
     Active Substance: ATORVASTATIN
  12. TEMAZEPAM. [Concomitant]
     Active Substance: TEMAZEPAM
  13. ASPIRIN. [Concomitant]
     Active Substance: ASPIRIN

REACTIONS (6)
  - Angioedema [None]
  - Pallor [None]
  - Speech disorder [None]
  - Dyspnoea [None]
  - Cold sweat [None]
  - Stridor [None]

NARRATIVE: CASE EVENT DATE: 20160907
